FAERS Safety Report 6687007-9 (Version None)
Quarter: 2010Q2

REPORT INFORMATION
  Report Type: 
  Country: None (occurrence: None)
  Receive Date: 20100419
  Receipt Date: 20100407
  Transmission Date: 20101027
  Serious: Yes (Hospitalization)
  Sender: FDA-Public Use
  Company Number: JP-PFIZER INC-2010045075

PATIENT
  Age: 63 Year
  Sex: Male
  Weight: 68 kg

DRUGS (7)
  1. SUNITINIB MALATE [Suspect]
     Indication: GASTROINTESTINAL STROMAL TUMOUR
     Dosage: 50 MG, 1X/DAY
     Route: 048
     Dates: start: 20090526
  2. AMARYL [Concomitant]
     Dosage: UNK
     Route: 048
     Dates: start: 19990101
  3. LIPITOR [Concomitant]
     Dosage: UNK
     Route: 048
     Dates: start: 19990101
  4. HARNAL [Concomitant]
     Dosage: UNK
     Route: 048
     Dates: start: 19990101
  5. TAKEPRON [Concomitant]
     Dosage: UNK
     Route: 048
     Dates: start: 20090501
  6. PURSENNID [Concomitant]
     Dosage: UNK
     Route: 048
     Dates: start: 20090501
  7. VOLTAREN [Concomitant]
     Dosage: UNK
     Route: 054
     Dates: start: 20090501

REACTIONS (1)
  - FEBRILE INFECTION [None]
